FAERS Safety Report 7773557-0 (Version None)
Quarter: 2011Q3

REPORT INFORMATION
  Report Type: 
  Country: None (occurrence: None)
  Receive Date: 20110922
  Receipt Date: 20110920
  Transmission Date: 20111222
  Serious: Yes (Hospitalization)
  Sender: FDA-Public Use
  Company Number: BR-BRISTOL-MYERS SQUIBB COMPANY-16076374

PATIENT
  Age: 64 Year
  Sex: Male

DRUGS (4)
  1. FLAGYL [Concomitant]
     Dates: start: 20110917
  2. ROCEPHIN [Concomitant]
     Dates: start: 20110917
  3. SOLU-MEDROL [Concomitant]
     Dates: start: 20110917
  4. IPILIMUMAB [Suspect]
     Indication: MALIGNANT MELANOMA
     Dosage: 13JUL-13JUL11,03AUG-03AUG11,24AUG-24AUG11
     Route: 042
     Dates: start: 20110713, end: 20110824

REACTIONS (2)
  - ABDOMINAL PAIN [None]
  - DIARRHOEA [None]
